FAERS Safety Report 4530750-8 (Version None)
Quarter: 2004Q4

REPORT INFORMATION
  Report Type: 
  Country: None (occurrence: None)
  Receive Date: 20041216
  Receipt Date: 20041202
  Transmission Date: 20050328
  Serious: Yes (Hospitalization)
  Sender: FDA-Public Use
  Company Number: 2004US001470

PATIENT
  Age: 6 Year
  Sex: Male

DRUGS (3)
  1. PROGRAF [Suspect]
     Indication: PROPHYLAXIS AGAINST TRANSPLANT REJECTION
     Dosage: 2.50 MG, UID/QD, ORAL; 1.00 MG, UID/QD; 1.00 MG, BID
     Route: 048
  2. SIROLIMUS (SIROLIMUS) [Suspect]
     Dosage: 1.50 MG, BID, 20.70 MG, BID
  3. ZITHROMAX [Suspect]

REACTIONS (18)
  - ACCIDENTAL OVERDOSE [None]
  - ANAEMIA [None]
  - BONE MARROW TOXICITY [None]
  - BRONCHITIS [None]
  - DELUSION [None]
  - DISCOMFORT [None]
  - DISORIENTATION [None]
  - DRUG INTERACTION [None]
  - DRUG LEVEL INCREASED [None]
  - FEELING ABNORMAL [None]
  - FEELING HOT [None]
  - GENERAL PHYSICAL HEALTH DETERIORATION [None]
  - INSOMNIA [None]
  - MEDICATION ERROR [None]
  - NEUROLOGICAL SYMPTOM [None]
  - PYREXIA [None]
  - RENAL IMPAIRMENT [None]
  - SINUSITIS [None]
